FAERS Safety Report 11078440 (Version 1)
Quarter: 2015Q2

REPORT INFORMATION
  Report Type: Spontaneous
  Country: US (occurrence: None)
  Receive Date: 20150429
  Receipt Date: 20150429
  Transmission Date: 20150821
  Serious: Yes (Life-Threatening, Hospitalization, Disabling)
  Sender: FDA-Public Use
  Company Number: None

PATIENT
  Age: 48 Year
  Sex: Female
  Weight: 77.11 kg

DRUGS (11)
  1. HYDROXYZINE [Concomitant]
     Active Substance: HYDROXYZINE\HYDROXYZINE HYDROCHLORIDE
  2. AMLODIPINE BESILATE [Suspect]
     Active Substance: AMLODIPINE BESYLATE
  3. ALLOPURINOL. [Suspect]
     Active Substance: ALLOPURINOL
     Indication: GOUT
     Route: 048
     Dates: start: 20141212, end: 20141224
  4. CALCIUM ACETATE. [Concomitant]
     Active Substance: CALCIUM ACETATE
  5. FISH OIL [Suspect]
     Active Substance: FISH OIL
  6. PREDNISONE. [Concomitant]
     Active Substance: PREDNISONE
  7. METOPROLOL [Concomitant]
     Active Substance: METOPROLOL
  8. TORSEMIDE. [Concomitant]
     Active Substance: TORSEMIDE
  9. SODIUM BICARBONATE. [Concomitant]
     Active Substance: SODIUM BICARBONATE
  10. INSULIN [Suspect]
     Active Substance: INSULIN NOS
  11. TRIAMCINOLONE [Suspect]
     Active Substance: TRIAMCINOLONE

REACTIONS (18)
  - Condition aggravated [None]
  - Feeling abnormal [None]
  - Drug effect decreased [None]
  - Pyrexia [None]
  - Dyspnoea [None]
  - Weight decreased [None]
  - Economic problem [None]
  - Skin disorder [None]
  - Pruritus generalised [None]
  - Erythema [None]
  - Renal failure [None]
  - Swelling face [None]
  - Lung disorder [None]
  - Hypophagia [None]
  - Dialysis [None]
  - Oedema peripheral [None]
  - Rash [None]
  - Skin exfoliation [None]

NARRATIVE: CASE EVENT DATE: 20141214
